FAERS Safety Report 5435861-0 (Version None)
Quarter: 2007Q3

REPORT INFORMATION
  Report Type: 
  Country: None (occurrence: None)
  Receive Date: 20070831
  Receipt Date: 20070726
  Transmission Date: 20080115
  Serious: No
  Sender: FDA-Public Use
  Company Number: A0666199A

PATIENT
  Age: 25 Year
  Sex: Female

DRUGS (1)
  1. ALLI [Suspect]
     Dates: start: 20070719

REACTIONS (9)
  - ANAL DISCOMFORT [None]
  - DEFAECATION URGENCY [None]
  - DIARRHOEA [None]
  - FAECAL VOLUME DECREASED [None]
  - FAECES DISCOLOURED [None]
  - HYPERHIDROSIS [None]
  - MALAISE [None]
  - PRESYNCOPE [None]
  - STEATORRHOEA [None]
